FAERS Safety Report 5032057-1 (Version None)
Quarter: 2006Q2

REPORT INFORMATION
  Report Type: 
  Country: None (occurrence: None)
  Receive Date: 20060616
  Receipt Date: 20060605
  Transmission Date: 20061013
  Serious: Yes (Hospitalization)
  Sender: FDA-Public Use
  Company Number: B0426577A

PATIENT
  Age: 13 Year
  Sex: Male

DRUGS (4)
  1. ALBENZA [Suspect]
  2. IVERMECTIN (FORMULATION UNKNOWN) (IVERMECTIN) [Suspect]
  3. PRAZIQUANTEL (FORMULATION UNKNOWN) (PRAZIQUANTEL) [Suspect]
  4. ISONIAZID [Concomitant]

REACTIONS (14)
  - ABDOMINAL PAIN UPPER [None]
  - ANGIONEUROTIC OEDEMA [None]
  - BLASTOCYSTIS INFECTION [None]
  - EOSINOPHILIA [None]
  - HEART RATE INCREASED [None]
  - MAZZOTTI REACTION [None]
  - MYALGIA [None]
  - OEDEMA PERIPHERAL [None]
  - PARASITIC INFECTION INTESTINAL [None]
  - PENILE SWELLING [None]
  - PRURITUS [None]
  - RESPIRATORY RATE INCREASED [None]
  - TUBERCULIN TEST POSITIVE [None]
  - URTICARIA [None]
